FAERS Safety Report 24285051 (Version 1)
Quarter: 2024Q3

REPORT INFORMATION
  Report Type: Spontaneous
  Country: US (occurrence: None)
  Receive Date: 20240901
  Receipt Date: 20240901
  Transmission Date: 20241016
  Serious: Yes (Hospitalization)
  Sender: Public
  Company Number: None

PATIENT
  Sex: Female

DRUGS (1)
  1. HYRIMOZ [Suspect]
     Active Substance: ADALIMUMAB-ADAZ
     Indication: Rheumatoid arthritis
     Dosage: 40MG EVERY 7 DAYS UNDER THE SKIN
     Route: 058
     Dates: start: 202404

REACTIONS (3)
  - Cardiac disorder [None]
  - Muscle spasms [None]
  - Chest pain [None]
